FAERS Safety Report 8424246-0 (Version None)
Quarter: 2012Q2

REPORT INFORMATION
  Report Type: 
  Country: None (occurrence: None)
  Receive Date: 20120608
  Receipt Date: 20111031
  Transmission Date: 20120825
  Serious: No
  Sender: FDA-Public Use
  Company Number: US-ASTRAZENECA-2011SE65700

PATIENT
  Age: 77 Year
  Sex: Female
  Weight: 60.3 kg

DRUGS (4)
  1. PULMICORT [Suspect]
     Indication: ASTHMA
     Dosage: 0.5 MG PER 2 ML, EVERY 12 HOURS
     Route: 055
     Dates: start: 20110924, end: 20110928
  2. ALLEGRA [Concomitant]
  3. NASAL INHALER [Concomitant]
  4. SINGULAIR [Concomitant]

REACTIONS (3)
  - OCULAR HYPERAEMIA [None]
  - ADVERSE DRUG REACTION [None]
  - MUSCLE SPASMS [None]
